FAERS Safety Report 4438864-8 (Version None)
Quarter: 2004Q3

REPORT INFORMATION
  Report Type: 
  Country: None (occurrence: None)
  Receive Date: 20040901
  Receipt Date: 20040806
  Transmission Date: 20050211
  Serious: Yes (Life-Threatening, Hospitalization)
  Sender: FDA-Public Use
  Company Number: 200412559JP

PATIENT
  Age: 63 Year
  Sex: Male
  Weight: 64 kg

DRUGS (10)
  1. LASIX [Suspect]
     Indication: CARDIAC FAILURE
     Route: 048
     Dates: start: 20040621
  2. DAONIL [Suspect]
     Indication: DIABETES MELLITUS
     Route: 048
     Dates: start: 19981130
  3. ALDACTONE-A [Suspect]
     Indication: CARDIAC FAILURE
     Route: 048
     Dates: start: 20040621
  4. GLUCOBAY [Suspect]
     Indication: DIABETES MELLITUS
     Dosage: DOSE: 3 TABLETS/DAY
     Route: 048
     Dates: start: 20040510
  5. LANIRAPID [Concomitant]
     Indication: ATRIAL FIBRILLATION
     Dosage: DOSE: 1TABLET/DAY
     Route: 048
     Dates: start: 20021101, end: 20040805
  6. WARFARIN SODIUM [Concomitant]
     Indication: ATRIAL FIBRILLATION
     Route: 048
     Dates: start: 20021101
  7. ADALAT [Concomitant]
     Indication: HYPERTENSION
     Route: 048
  8. GASTER [Concomitant]
     Indication: GASTRITIS
     Route: 048
  9. BEZATOL [Concomitant]
     Indication: HYPERLIPIDAEMIA
     Dosage: DOSE: 2TABLETS/DAY
     Route: 048
     Dates: start: 20030701
  10. CEROCRAL [Concomitant]
     Indication: CEREBELLAR INFARCTION
     Dosage: DOSE: 3TABLETS/DAY
     Route: 048

REACTIONS (5)
  - DEPRESSED LEVEL OF CONSCIOUSNESS [None]
  - GLYCOSYLATED HAEMOGLOBIN INCREASED [None]
  - HYPOGLYCAEMIA [None]
  - MARKEDLY REDUCED DIETARY INTAKE [None]
  - OVERDOSE [None]
